FAERS Safety Report 19772332 (Version 1)
Quarter: 2021Q3

REPORT INFORMATION
  Report Type: Spontaneous
  Country: US (occurrence: US)
  Receive Date: 20210828
  Receipt Date: 20210828
  Transmission Date: 20211014
  Serious: Yes (Hospitalization)
  Sender: FDA-Public Use
  Company Number: None

PATIENT
  Age: 34 Year
  Sex: Male
  Weight: 65.5 kg

DRUGS (5)
  1. MERCAPTOPURINE. [Suspect]
     Active Substance: MERCAPTOPURINE
     Dates: end: 20210810
  2. ONCASPAR [Suspect]
     Active Substance: PEGASPARGASE
     Indication: PRODUCT USED FOR UNKNOWN INDICATION
     Dosage: ?          OTHER DOSE:2000 IU;?
     Dates: end: 20210811
  3. VINCRISTINE SULFATE. [Suspect]
     Active Substance: VINCRISTINE SULFATE
     Indication: PRODUCT USED FOR UNKNOWN INDICATION
     Dates: end: 20210811
  4. CYCLOPHOSPHAMIDE. [Suspect]
     Active Substance: CYCLOPHOSPHAMIDE
     Dates: end: 20210728
  5. CYTARABINE. [Suspect]
     Active Substance: CYTARABINE
     Dates: end: 20210808

REACTIONS (12)
  - Nausea [None]
  - Vomiting [None]
  - Heart rate increased [None]
  - Febrile neutropenia [None]
  - Asthenia [None]
  - Hypotension [None]
  - Dehydration [None]
  - Coagulopathy [None]
  - Haemoglobin decreased [None]
  - Flank pain [None]
  - Pyrexia [None]
  - Lactic acidosis [None]

NARRATIVE: CASE EVENT DATE: 20210813
